FAERS Safety Report 10027549 (Version 1)
Quarter: 2014Q1

REPORT INFORMATION
  Report Type: Spontaneous
  Country: US (occurrence: US)
  Receive Date: 20140321
  Receipt Date: 20140321
  Transmission Date: 20141002
  Serious: No
  Sender: FDA-Public Use
  Company Number: US-PFIZER INC-2014081221

PATIENT
  Sex: Female

DRUGS (3)
  1. EFFEXOR XR [Suspect]
     Dosage: 150 MG, UNK
  2. SYNTHROID [Concomitant]
     Dosage: UNK
  3. CIPRO [Concomitant]
     Dosage: UNK

REACTIONS (7)
  - Product quality issue [Unknown]
  - Feeling abnormal [Unknown]
  - Tremor [Unknown]
  - Asthenia [Unknown]
  - Fatigue [Unknown]
  - Malaise [Unknown]
  - Chest pain [Unknown]
